FAERS Safety Report 8484664-1 (Version None)
Quarter: 2012Q3

REPORT INFORMATION
  Report Type: 
  Country: None (occurrence: None)
  Receive Date: 20120703
  Receipt Date: 20120406
  Transmission Date: 20120928
  Serious: Yes (Other)
  Sender: FDA-Public Use
  Company Number: US-TEVA-332276USA

PATIENT
  Age: 35 Year
  Sex: Female

DRUGS (1)
  1. NUVIGIL [Suspect]
     Indication: HYPOTHYROIDISM
     Route: 048

REACTIONS (3)
  - OVERDOSE [None]
  - OFF LABEL USE [None]
  - DEPENDENCE [None]
